FAERS Safety Report 5428847-3 (Version None)
Quarter: 2007Q3

REPORT INFORMATION
  Report Type: 
  Country: None (occurrence: None)
  Receive Date: 20070829
  Receipt Date: 20070228
  Transmission Date: 20080115
  Serious: No
  Sender: FDA-Public Use
  Company Number: A0641348A

PATIENT
  Age: 58 Year
  Sex: Female

DRUGS (3)
  1. ACYCLOVIR [Suspect]
     Dosage: 800MG THREE TIMES PER DAY
     Route: 048
  2. CLOTRIMAZOLE [Concomitant]
  3. NYSTATIN [Concomitant]

REACTIONS (1)
  - DRUG INEFFECTIVE [None]
